FAERS Safety Report 19943169 (Version 1)
Quarter: 2021Q4

REPORT INFORMATION
  Report Type: Spontaneous
  Country: GB (occurrence: GB)
  Receive Date: 20211012
  Receipt Date: 20211012
  Transmission Date: 20220303
  Serious: Yes (Death, Other)
  Sender: FDA-Public Use
  Company Number: GB-LUNDBECK-DKLU3039440

PATIENT
  Age: 5 Decade
  Sex: Female

DRUGS (2)
  1. VORTIOXETINE [Suspect]
     Active Substance: VORTIOXETINE
     Indication: Product used for unknown indication
     Dosage: 5 MILLIGRAM
     Route: 065
  2. VORTIOXETINE [Suspect]
     Active Substance: VORTIOXETINE
     Dosage: 10 MILLIGRAM, QD
     Route: 065

REACTIONS (1)
  - Completed suicide [Fatal]
